FAERS Safety Report 5267917-X (Version None)
Quarter: 2007Q1

REPORT INFORMATION
  Report Type: 
  Country: None (occurrence: None)
  Receive Date: 20061213
  Receipt Date: 20030625
  Transmission Date: 20070707
  Serious: Yes (Hospitalization)
  Sender: FDA-Public Use
  Company Number: 2003UW06216

PATIENT
  Age: 64 Year
  Sex: Female
  Weight: 58.9676 kg

DRUGS (4)
  1. ARIMIDEX [Suspect]
     Dates: start: 20030101
  2. TAMOXIFEN CITRATE [Suspect]
     Indication: BREAST CANCER
     Dates: start: 20020101, end: 20030301
  3. ACTONEL [Concomitant]
  4. NORVASC [Concomitant]

REACTIONS (5)
  - ARTHRALGIA [None]
  - BONE PAIN [None]
  - BREAST CANCER [None]
  - CHEST PAIN [None]
  - PAIN IN EXTREMITY [None]
